FAERS Safety Report 9416353 (Version 1)
Quarter: 2013Q3

REPORT INFORMATION
  Report Type: Spontaneous
  Country: GB (occurrence: GB)
  Receive Date: 20130718
  Receipt Date: 20130718
  Transmission Date: 20140515
  Serious: Yes (Hospitalization)
  Sender: FDA-Public Use
  Company Number: AUR-APL-2013-05801

PATIENT
  Age: 74 Year
  Sex: 0

DRUGS (4)
  1. AMOXICILLIN (AMOXICILLIN) [Suspect]
     Indication: COUGH
     Dosage: 500 MG DOSES THREE TIMES PER DAY.
     Route: 048
     Dates: start: 20110209, end: 20110216
  2. FLUCONAZOLE (FLUCONAZOLE) [Suspect]
     Indication: ORAL CANDIDIASIS
     Route: 048
     Dates: start: 20110429, end: 20110503
  3. CEFACLOR [Suspect]
     Indication: DIVERTICULITIS
     Dosage: TWO DOSES OF 375 MG TAKEN PER DAY.
     Route: 048
     Dates: start: 20110408, end: 20110414
  4. ERTAPENEM [Suspect]
     Indication: GRAM STAIN NEGATIVE
     Route: 041
     Dates: start: 20110424, end: 20110504

REACTIONS (2)
  - Clostridium test positive [None]
  - Diarrhoea [None]
